FAERS Safety Report 24899383 (Version 6)
Quarter: 2025Q2

REPORT INFORMATION
  Report Type: Report from Study
  Country: LU (occurrence: LU)
  Receive Date: 20250129
  Receipt Date: 20250427
  Transmission Date: 20250716
  Serious: Yes (Hospitalization)
  Sender: ABBVIE
  Company Number: BE-ABBVIE-6107065

PATIENT
  Age: 49 Year
  Sex: Male

DRUGS (3)
  1. FOSCARBIDOPA\FOSLEVODOPA [Suspect]
     Active Substance: FOSCARBIDOPA\FOSLEVODOPA
     Indication: Parkinson^s disease
     Route: 058
     Dates: start: 20241216
  2. FOSCARBIDOPA\FOSLEVODOPA [Suspect]
     Active Substance: FOSCARBIDOPA\FOSLEVODOPA
     Route: 058
     Dates: start: 20241218, end: 20241220
  3. FOSCARBIDOPA\FOSLEVODOPA [Suspect]
     Active Substance: FOSCARBIDOPA\FOSLEVODOPA
     Route: 058
     Dates: start: 20241220

REACTIONS (8)
  - Mental disorder [Recovering/Resolving]
  - Subcutaneous abscess [Not Recovered/Not Resolved]
  - Nodule [Unknown]
  - On and off phenomenon [Unknown]
  - Dyskinesia [Recovered/Resolved]
  - Apathy [Unknown]
  - Depression [Unknown]
  - Resting tremor [Unknown]

NARRATIVE: CASE EVENT DATE: 20250124
